FAERS Safety Report 16826098 (Version 1)
Quarter: 2019Q3

REPORT INFORMATION
  Report Type: Spontaneous
  Country: CA (occurrence: CA)
  Receive Date: 20190919
  Receipt Date: 20190919
  Transmission Date: 20191005
  Serious: Yes (Other)
  Sender: FDA-Public Use
  Company Number: CA-AUROBINDO-AUR-APL-2019-059573

PATIENT
  Age: 43 Year
  Sex: Male

DRUGS (5)
  1. PREDNISONE. [Concomitant]
     Active Substance: PREDNISONE
     Indication: CHRONIC SPONTANEOUS URTICARIA
     Dosage: 1.0 DOSAGE FORM, DAILY
     Route: 048
  2. KETOTIFEN FUMARATE. [Concomitant]
     Active Substance: KETOTIFEN FUMARATE
     Indication: CHRONIC SPONTANEOUS URTICARIA
     Dosage: 1.0 DOSAGE FORM, DAILY
     Route: 048
  3. MONTELUKAST [Suspect]
     Active Substance: MONTELUKAST SODIUM
     Indication: CHRONIC SPONTANEOUS URTICARIA
     Dosage: 1.0 DOSAGE FORM, DAILY
     Route: 048
  4. RUPALL [Concomitant]
     Active Substance: RUPATADINE FUMARATE
     Indication: CHRONIC SPONTANEOUS URTICARIA
     Dosage: 1.0 DOSAGE FORM, TWO TIMES A DAY
     Route: 048
  5. ZANTAC [Concomitant]
     Active Substance: RANITIDINE HYDROCHLORIDE
     Indication: CHRONIC SPONTANEOUS URTICARIA
     Dosage: 1.0 DOSAGE FORM, TWO TIMES A DAY
     Route: 048

REACTIONS (7)
  - Chronic spontaneous urticaria [Unknown]
  - Urticaria [Unknown]
  - Lip swelling [Unknown]
  - Condition aggravated [Unknown]
  - Anaphylactic reaction [Unknown]
  - Product use in unapproved indication [Unknown]
  - Pruritus [Unknown]
